FAERS Safety Report 4944791-X (Version None)
Quarter: 2006Q1

REPORT INFORMATION
  Report Type: 
  Country: None (occurrence: None)
  Receive Date: 20060315
  Receipt Date: 20050204
  Transmission Date: 20060701
  Serious: Yes (Hospitalization, Disabling)
  Sender: FDA-Public Use
  Company Number: DE-MERCK-0502DEU00057

PATIENT
  Age: 49 Year
  Sex: Male
  Weight: 80 kg

DRUGS (15)
  1. VIOXX [Suspect]
     Indication: SHOULDER PAIN
     Route: 048
     Dates: start: 20000201, end: 20000401
  2. VIOXX [Suspect]
     Route: 048
     Dates: start: 20000401, end: 20020701
  3. VIOXX [Suspect]
     Route: 048
     Dates: start: 20040520, end: 20040529
  4. VIOXX [Suspect]
     Route: 048
     Dates: start: 20040529, end: 20040603
  5. VIOXX [Suspect]
     Route: 048
     Dates: start: 20020901, end: 20040301
  6. VIOXX [Suspect]
     Indication: POSTPERICARDIOTOMY SYNDROME
     Route: 048
     Dates: start: 20000201, end: 20000401
  7. VIOXX [Suspect]
     Route: 048
     Dates: start: 20000401, end: 20020701
  8. VIOXX [Suspect]
     Route: 048
     Dates: start: 20040520, end: 20040529
  9. VIOXX [Suspect]
     Route: 048
     Dates: start: 20040529, end: 20040603
  10. VIOXX [Suspect]
     Route: 048
     Dates: start: 20020901, end: 20040301
  11. METOPROLOL SUCCINATE [Concomitant]
     Indication: CORONARY ARTERY DISEASE
     Route: 048
     Dates: start: 20040520, end: 20040604
  12. METOPROLOL SUCCINATE [Concomitant]
     Route: 048
     Dates: start: 19990301
  13. TORSEMIDE [Concomitant]
     Route: 048
     Dates: start: 20040520, end: 20040603
  14. ATORVASTATIN CALCIUM [Concomitant]
     Indication: HYPERLIPIDAEMIA
     Route: 048
     Dates: start: 20040520, end: 20040605
  15. ASPIRIN [Concomitant]
     Indication: CORONARY ARTERY DISEASE
     Route: 048
     Dates: start: 20040520, end: 20040605

REACTIONS (6)
  - ABSCESS LIMB [None]
  - BLOOD HOMOCYSTEINE INCREASED [None]
  - CORONARY ARTERY DISEASE [None]
  - HYPERCHOLESTEROLAEMIA [None]
  - HYPERTENSION [None]
  - PALPITATIONS [None]
